FAERS Safety Report 10391001 (Version 1)
Quarter: 2014Q3

REPORT INFORMATION
  Report Type: Spontaneous
  Country: IT (occurrence: IT)
  Receive Date: 20140818
  Receipt Date: 20140818
  Transmission Date: 20150326
  Serious: Yes (Hospitalization)
  Sender: FDA-Public Use
  Company Number: IT-PFIZER INC-2014227485

PATIENT
  Age: 89 Year
  Sex: Female

DRUGS (6)
  1. EUTIROX [Concomitant]
     Active Substance: LEVOTHYROXINE SODIUM
     Route: 048
  2. LEXOTAN [Suspect]
     Active Substance: BROMAZEPAM
     Indication: ANXIETY DISORDER DUE TO A GENERAL MEDICAL CONDITION
     Dosage: 5 DROPS, DAILY
     Route: 048
     Dates: start: 20140101, end: 20140701
  3. ZESTRIL [Concomitant]
     Active Substance: LISINOPRIL
     Route: 048
  4. FELODIPINE. [Concomitant]
     Active Substance: FELODIPINE
     Route: 048
  5. HALCION [Suspect]
     Active Substance: TRIAZOLAM
     Indication: ANXIETY DISORDER DUE TO A GENERAL MEDICAL CONDITION
     Dosage: 1 DF, 1X/DAY
     Route: 048
     Dates: start: 20140101, end: 20140701
  6. LANOXIN [Concomitant]
     Active Substance: DIGOXIN
     Route: 048

REACTIONS (2)
  - Vomiting [Unknown]
  - Coma [Unknown]

NARRATIVE: CASE EVENT DATE: 20140701
